FAERS Safety Report 8590509-1 (Version None)
Quarter: 2012Q3

REPORT INFORMATION
  Report Type: 
  Country: None (occurrence: None)
  Receive Date: 20120813
  Receipt Date: 20120809
  Transmission Date: 20120928
  Serious: Yes (Death)
  Sender: FDA-Public Use
  Company Number: US-B.I. PHARMACEUTICALS,INC./RIDGEFIELD-2012-BP-18728BP

PATIENT
  Sex: Female

DRUGS (2)
  1. PRADAXA [Suspect]
  2. PRADAXA [Suspect]
     Indication: ANTICOAGULANT THERAPY
     Dates: start: 20110711

REACTIONS (2)
  - EPISTAXIS [None]
  - HAEMORRHAGE INTRACRANIAL [None]
